FAERS Safety Report 16117787 (Version 1)
Quarter: 2019Q1

REPORT INFORMATION
  Report Type: Report from Study
  Country: TN (occurrence: TN)
  Receive Date: 20190326
  Receipt Date: 20190326
  Transmission Date: 20190418
  Serious: Yes (Death, Hospitalization)
  Sender: FDA-Public Use
  Company Number: TN-SAKK-2019SA080273AA

PATIENT
  Age: 66 Year
  Sex: Female

DRUGS (9)
  1. CLOPIDOGREL BISULFATE. [Suspect]
     Active Substance: CLOPIDOGREL BISULFATE
     Indication: ACUTE MYOCARDIAL INFARCTION
     Dosage: 75 MG, QD(1 TAB A DAY)
     Route: 048
     Dates: start: 20180430, end: 20180718
  2. CINCOR [Concomitant]
     Dosage: UNK UNK, UNK
  3. CORVASAL [MOLSIDOMINE] [Concomitant]
     Dosage: UNK UNK, UNK
  4. ALDACTONE [Concomitant]
     Active Substance: SPIRONOLACTONE
     Dosage: UNK UNK, UNK
  5. STATINOR [Concomitant]
     Dosage: UNK UNK, UNK
  6. CLOPIDOGREL BISULFATE. [Suspect]
     Active Substance: CLOPIDOGREL BISULFATE
     Indication: ACUTE CORONARY SYNDROME
  7. GLITRA [Concomitant]
     Dosage: UNK UNK, UNK
  8. EXFORGE [Concomitant]
     Active Substance: AMLODIPINE BESYLATE\VALSARTAN
     Dosage: UNK UNK, UNK
  9. ASPIRIN [ACETYLSALICYLIC ACID] [Concomitant]
     Active Substance: ASPIRIN
     Dosage: UNK UNK, UNK

REACTIONS (4)
  - Malaise [Unknown]
  - General physical health deterioration [Unknown]
  - Fatigue [Unknown]
  - Cardiac arrest [Fatal]

NARRATIVE: CASE EVENT DATE: 20180718
